FAERS Safety Report 9602392 (Version 3)
Quarter: 2014Q1

REPORT INFORMATION
  Report Type: Report from Study
  Country: TR (occurrence: TR)
  Receive Date: 20131007
  Receipt Date: 20140107
  Transmission Date: 20141002
  Serious: Yes (Hospitalization)
  Sender: FDA-Public Use
  Company Number: TR-ABBVIE-13P-161-1154712-00

PATIENT
  Age: 47 Year
  Sex: Female
  Weight: 99 kg

DRUGS (6)
  1. HUMIRA [Suspect]
     Indication: RHEUMATOID ARTHRITIS
     Route: 058
     Dates: start: 20100609, end: 20130709
  2. HUMIRA [Suspect]
     Dates: start: 201312
  3. PLAQUENIL (HYDROXYCHLOROQUIN) [Concomitant]
     Indication: RHEUMATOID ARTHRITIS
     Route: 048
  4. DELTACORTRIL [Concomitant]
     Indication: RHEUMATOID ARTHRITIS
     Route: 048
  5. ARAVA [Concomitant]
     Indication: RHEUMATOID ARTHRITIS
     Route: 048
  6. PREDNOL [Concomitant]
     Indication: RHEUMATOID ARTHRITIS
     Route: 048

REACTIONS (2)
  - Neuritis [Recovered/Resolved]
  - Blood albumin decreased [Recovered/Resolved]
